FAERS Safety Report 15717347 (Version 1)
Quarter: 2018Q4

REPORT INFORMATION
  Report Type: Spontaneous
  Country: US (occurrence: US)
  Receive Date: 20181129
  Receipt Date: 20181129
  Transmission Date: 20190205
  Serious: No
  Sender: FDA-Public Use
  Company Number: None

PATIENT
  Age: 63 Year
  Sex: Female
  Weight: 91.63 kg

DRUGS (1)
  1. CIMZIA [Suspect]
     Active Substance: CERTOLIZUMAB PEGOL
     Indication: THERMAL BURN
     Dosage: ?          OTHER DOSE:400MG (2 SYRINGES);?
     Route: 058
     Dates: start: 201808

REACTIONS (1)
  - Localised infection [None]
